FAERS Safety Report 7036019-4 (Version None)
Quarter: 2010Q4

REPORT INFORMATION
  Report Type: 
  Country: None (occurrence: None)
  Receive Date: 20101008
  Receipt Date: 20101001
  Transmission Date: 20110411
  Serious: Yes (Other)
  Sender: FDA-Public Use
  Company Number: US-US-EMD SERONO, INC.-7015792

PATIENT
  Sex: Female
  Weight: 62 kg

DRUGS (11)
  1. REBIF [Suspect]
     Indication: MULTIPLE SCLEROSIS
     Route: 058
     Dates: start: 20100301
  2. PROTONIX [Concomitant]
     Indication: GASTROOESOPHAGEAL REFLUX DISEASE
     Route: 048
  3. DETROL [Concomitant]
     Indication: URINARY INCONTINENCE
     Route: 048
  4. TRICOR [Concomitant]
     Indication: BLOOD CHOLESTEROL
     Route: 048
  5. NIASPAN [Concomitant]
     Indication: BLOOD CHOLESTEROL
     Route: 048
  6. CALCIUM [Concomitant]
     Indication: BONE DISORDER
     Route: 048
  7. ONE A DAY [Concomitant]
     Route: 048
  8. VITAMIN B COMPLEX CAP [Concomitant]
     Route: 048
  9. ZOMIG [Concomitant]
     Indication: MIGRAINE
     Route: 048
  10. BLACK COHASH [Concomitant]
     Indication: NIGHT SWEATS
     Route: 048
  11. EXCEDRIN (MIGRAINE) [Concomitant]
     Indication: ARTHRITIS
     Route: 048

REACTIONS (4)
  - DEPRESSION [None]
  - FALL [None]
  - INTERVERTEBRAL DISC INJURY [None]
  - NERVE INJURY [None]
